FAERS Safety Report 6279604-X (Version None)
Quarter: 2009Q3

REPORT INFORMATION
  Report Type: 
  Country: None (occurrence: None)
  Receive Date: 20090723
  Receipt Date: 20090714
  Transmission Date: 20100115
  Serious: Yes (Hospitalization)
  Sender: FDA-Public Use
  Company Number: A0798084A

PATIENT
  Age: 72 Year
  Sex: Female

DRUGS (1)
  1. AVANDIA [Suspect]
     Route: 048

REACTIONS (3)
  - CEREBROVASCULAR ACCIDENT [None]
  - RETINAL VASCULAR THROMBOSIS [None]
  - VISUAL IMPAIRMENT [None]
